FAERS Safety Report 22273966 (Version 1)
Quarter: 2023Q2

REPORT INFORMATION
  Report Type: Spontaneous
  Country: DE (occurrence: DE)
  Receive Date: 20230502
  Receipt Date: 20230502
  Transmission Date: 20230721
  Serious: Yes (Death)
  Sender: FDA-Public Use
  Company Number: DE-AMGEN-DEUSP2023073948

PATIENT
  Age: 49 Year
  Sex: Female

DRUGS (1)
  1. LUMAKRAS [Suspect]
     Active Substance: SOTORASIB
     Indication: Non-small cell lung cancer
     Dosage: 8 DOSAGE FORM (TABLETS), QD
     Route: 065
     Dates: start: 202203

REACTIONS (2)
  - Death [Fatal]
  - Weight increased [Unknown]
